FAERS Safety Report 8249442-7 (Version None)
Quarter: 2012Q2

REPORT INFORMATION
  Report Type: 
  Country: None (occurrence: None)
  Receive Date: 20120402
  Receipt Date: 20120326
  Transmission Date: 20120825
  Serious: Yes (Other)
  Sender: FDA-Public Use
  Company Number: US-JNJFOC-20111210410

PATIENT
  Sex: Male
  Weight: 21.77 kg

DRUGS (2)
  1. CONCERTA [Suspect]
     Indication: ATTENTION DEFICIT/HYPERACTIVITY DISORDER
     Route: 048
     Dates: start: 20110601
  2. RISPERIDONE [Concomitant]
     Indication: TOURETTE'S DISORDER
     Route: 048
     Dates: start: 20110601

REACTIONS (1)
  - TOURETTE'S DISORDER [None]
